FAERS Safety Report 12758365 (Version 1)
Quarter: 2016Q3

REPORT INFORMATION
  Report Type: Spontaneous
  Country: US (occurrence: US)
  Receive Date: 20160917
  Receipt Date: 20160917
  Transmission Date: 20161109
  Serious: Yes (Other)
  Sender: FDA-Public Use
  Company Number: None

PATIENT
  Age: 38 Year
  Sex: Female
  Weight: 106.65 kg

DRUGS (2)
  1. ARMODOFANIL MYLAN [Suspect]
     Active Substance: ARMODAFINIL
     Indication: NARCOLEPSY
     Route: 048
     Dates: start: 20160908, end: 20160913
  2. NUVIGIL [Concomitant]
     Active Substance: ARMODAFINIL

REACTIONS (9)
  - Palpitations [None]
  - Cough [None]
  - Nausea [None]
  - Abdominal pain upper [None]
  - Vomiting [None]
  - Insomnia [None]
  - Product substitution issue [None]
  - Bowel movement irregularity [None]
  - Headache [None]

NARRATIVE: CASE EVENT DATE: 20160912
